FAERS Safety Report 24465601 (Version 1)
Quarter: 2024Q4

REPORT INFORMATION
  Report Type: Report from Study
  Country: US (occurrence: US)
  Receive Date: 20241018
  Receipt Date: 20241018
  Transmission Date: 20250115
  Serious: No
  Sender: ROCHE
  Company Number: US-ROCHE-3531965

PATIENT
  Age: 37 Year
  Sex: Female

DRUGS (9)
  1. XOLAIR [Suspect]
     Active Substance: OMALIZUMAB
     Indication: Urticaria
     Route: 058
     Dates: start: 20240312
  2. XOLAIR [Suspect]
     Active Substance: OMALIZUMAB
  3. EPINEPHRINE [Concomitant]
     Active Substance: EPINEPHRINE
  4. LEVOCETIRIZINE [Concomitant]
     Active Substance: LEVOCETIRIZINE
     Route: 048
     Dates: start: 20240312
  5. MONTELUKAST [Concomitant]
     Active Substance: MONTELUKAST
     Route: 048
     Dates: start: 20240312
  6. FLUTICASONE PROPIONATE [Concomitant]
     Active Substance: FLUTICASONE PROPIONATE
     Dosage: FREQUENCY TEXT:12/MAR/2024
     Route: 045
  7. OMEPRAZOLE [Concomitant]
     Active Substance: OMEPRAZOLE
     Route: 048
     Dates: start: 20240312
  8. ALBUTEROL SULFATE [Concomitant]
     Active Substance: ALBUTEROL SULFATE
     Route: 055
     Dates: start: 20240312
  9. ALLEGRA ALLERGY [Concomitant]
     Active Substance: FEXOFENADINE HYDROCHLORIDE
     Route: 048
     Dates: start: 20240312

REACTIONS (2)
  - Urticaria [Unknown]
  - Asthma [Unknown]
